FAERS Safety Report 9286548 (Version 2)
Quarter: 2013Q4

REPORT INFORMATION
  Report Type: Spontaneous
  Country: US (occurrence: US)
  Receive Date: 20130513
  Receipt Date: 20131025
  Transmission Date: 20140711
  Serious: Yes (Death, Hospitalization, Other)
  Sender: FDA-Public Use
  Company Number: US-B.I. PHARMACEUTICALS,INC./RIDGEFIELD-2013-BI-13265BP

PATIENT
  Age: 82 Year
  Sex: Female
  Weight: 43.09 kg

DRUGS (9)
  1. PRADAXA [Suspect]
     Indication: ANTICOAGULANT THERAPY
     Dosage: 300 MG
     Route: 048
     Dates: start: 20110421, end: 20120117
  2. PRADAXA [Suspect]
     Indication: ATRIAL FIBRILLATION
  3. ASPIRIN [Concomitant]
  4. POTASSIUM CHLORIDE [Concomitant]
  5. CLONIDINE [Concomitant]
  6. LASIX [Concomitant]
  7. SIMVASTATIN [Concomitant]
     Indication: DYSLIPIDAEMIA
  8. METOPROLOL [Concomitant]
  9. BENICAR [Concomitant]
     Indication: HYPERTENSION

REACTIONS (8)
  - Pneumonia aspiration [Fatal]
  - Lower gastrointestinal haemorrhage [Unknown]
  - Convulsion [Unknown]
  - Atrial fibrillation [Unknown]
  - Sinus arrest [Unknown]
  - Anaemia [Unknown]
  - Increased tendency to bruise [Unknown]
  - Oesophageal motility disorder [Unknown]
